FAERS Safety Report 19172136 (Version 1)
Quarter: 2021Q2

REPORT INFORMATION
  Report Type: Spontaneous
  Country: CA (occurrence: CA)
  Receive Date: 20210423
  Receipt Date: 20210423
  Transmission Date: 20210717
  Serious: Yes (Hospitalization)
  Sender: FDA-Public Use
  Company Number: CA-JNJFOC-20210442035

PATIENT
  Age: 65 Year
  Sex: Male
  Weight: 102 kg

DRUGS (8)
  1. ATACAND [Concomitant]
     Active Substance: CANDESARTAN CILEXETIL
  2. NORVASC [Concomitant]
     Active Substance: AMLODIPINE BESYLATE
  3. DIAMICRON [Concomitant]
     Active Substance: GLICLAZIDE
  4. ASA [Concomitant]
     Active Substance: ASPIRIN
     Route: 065
  5. GLUCOPHAGE [Concomitant]
     Active Substance: METFORMIN HYDROCHLORIDE
  6. CRESTOR [Concomitant]
     Active Substance: ROSUVASTATIN CALCIUM
  7. ONGLYZA [Concomitant]
     Active Substance: SAXAGLIPTIN HYDROCHLORIDE
  8. INVOKANA [Suspect]
     Active Substance: CANAGLIFLOZIN
     Indication: DIABETES MELLITUS
     Route: 048

REACTIONS (1)
  - Metabolic acidosis [Recovered/Resolved]
